FAERS Safety Report 9113872 (Version 2)
Quarter: 2013Q1

REPORT INFORMATION
  Report Type: Spontaneous
  Country: KR (occurrence: KR)
  Receive Date: 20130208
  Receipt Date: 20130315
  Transmission Date: 20140127
  Serious: Yes (Other)
  Sender: FDA-Public Use
  Company Number: KR-JNJFOC-20130201086

PATIENT
  Age: 42 Year
  Sex: Male
  Weight: 86 kg

DRUGS (6)
  1. REMICADE [Suspect]
     Indication: CROHN^S DISEASE
     Dosage: 16 INFUSION
     Route: 042
     Dates: start: 20100824, end: 20121119
  2. IMMUTHERA [Concomitant]
     Indication: CROHN^S DISEASE
     Route: 048
     Dates: start: 201002
  3. PENTASA [Concomitant]
     Route: 048
  4. FOLIC ACID [Concomitant]
     Route: 048
     Dates: start: 201202
  5. MUCOSTA [Concomitant]
     Dates: start: 201202
  6. DICETEL [Concomitant]
     Route: 048

REACTIONS (1)
  - Thyroid cancer [Unknown]
